FAERS Safety Report 10818498 (Version 2)
Quarter: 2015Q2

REPORT INFORMATION
  Report Type: Report from Study
  Country: US (occurrence: US)
  Receive Date: 20150218
  Receipt Date: 20150401
  Transmission Date: 20150821
  Serious: Yes (Hospitalization, Other)
  Sender: FDA-Public Use
  Company Number: US-BAYER-2015-008808

PATIENT
  Age: 72 Year
  Sex: Female

DRUGS (2)
  1. REGORAFENIB [Suspect]
     Active Substance: REGORAFENIB
     Indication: SALIVARY GLAND CANCER
     Dosage: 80 MG, DAILY
     Route: 048
     Dates: start: 2015
  2. REGORAFENIB [Suspect]
     Active Substance: REGORAFENIB
     Indication: SALIVARY GLAND CANCER
     Dosage: UNK
     Route: 048
     Dates: start: 20150116, end: 20150208

REACTIONS (10)
  - Dehydration [Recovered/Resolved]
  - Hypoxia [None]
  - Thrombocytopenia [None]
  - Chills [None]
  - Abdominal pain [Recovering/Resolving]
  - Flank pain [Recovering/Resolving]
  - Fatigue [None]
  - Fall [None]
  - Fibula fracture [None]
  - Pleural effusion [None]

NARRATIVE: CASE EVENT DATE: 20150116
